FAERS Safety Report 4596232-2 (Version None)
Quarter: 2005Q1

REPORT INFORMATION
  Report Type: 
  Country: None (occurrence: None)
  Receive Date: 20050302
  Receipt Date: 20050224
  Transmission Date: 20050727
  Serious: Yes (Other)
  Sender: FDA-Public Use
  Company Number: AU-GLAXOSMITHKLINE-B0372918A

PATIENT
  Sex: Female

DRUGS (1)
  1. CARTIA XT [Suspect]
     Dosage: 1TAB PER DAY
     Route: 048
     Dates: start: 20040801

REACTIONS (2)
  - DEAFNESS [None]
  - TINNITUS [None]
